FAERS Safety Report 7911790-5 (Version None)
Quarter: 2011Q4

REPORT INFORMATION
  Report Type: 
  Country: None (occurrence: None)
  Receive Date: 20111114
  Receipt Date: 20111114
  Transmission Date: 20120403
  Serious: Yes (Hospitalization)
  Sender: FDA-Public Use
  Company Number: None

PATIENT
  Age: 36 Year
  Sex: Female
  Weight: 68.946 kg

DRUGS (1)
  1. MICROGESTIN 1.5/30 [Suspect]
     Indication: ORAL CONTRACEPTION
     Dosage: 1
     Route: 048
     Dates: start: 20111106, end: 20111109

REACTIONS (3)
  - TRANSIENT ISCHAEMIC ATTACK [None]
  - FEELING ABNORMAL [None]
  - DRUG DOSE OMISSION [None]
